FAERS Safety Report 5361854-8 (Version None)
Quarter: 2007Q2

REPORT INFORMATION
  Report Type: 
  Country: None (occurrence: None)
  Receive Date: 20070530
  Receipt Date: 20070313
  Transmission Date: 20071010
  Serious: No
  Sender: FDA-Public Use
  Company Number: 2007PV031628

PATIENT
  Age: 65 Year
  Sex: Female

DRUGS (1)
  1. BYETTA [Suspect]
     Indication: INCREASED APPETITE
     Dosage: 5 MCG; BID; SC
     Route: 058
     Dates: start: 20070307

REACTIONS (1)
  - NODULE [None]
